FAERS Safety Report 23192451 (Version 4)
Quarter: 2023Q4

REPORT INFORMATION
  Report Type: Spontaneous
  Country: US (occurrence: US)
  Receive Date: 20231116
  Receipt Date: 20231213
  Transmission Date: 20240110
  Serious: No
  Sender: FDA-Public Use
  Company Number: US-BRISTOL-MYERS SQUIBB COMPANY-2023-165376

PATIENT
  Age: 79 Year
  Sex: Female
  Weight: 68.49 kg

DRUGS (2)
  1. REVLIMID [Suspect]
     Active Substance: LENALIDOMIDE
     Indication: Plasma cell myeloma
     Route: 048
     Dates: start: 20231113
  2. REVLIMID [Suspect]
     Active Substance: LENALIDOMIDE

REACTIONS (7)
  - Fungal infection [Unknown]
  - Pruritus [Unknown]
  - Rosacea [Unknown]
  - Off label use [Unknown]
  - Tremor [Unknown]
  - Oral pain [Unknown]
  - Migraine [Unknown]

NARRATIVE: CASE EVENT DATE: 20231201
